FAERS Safety Report 9353497 (Version 1)
Quarter: 2013Q2

REPORT INFORMATION
  Report Type: Spontaneous
  Country: US (occurrence: None)
  Receive Date: 20130617
  Receipt Date: 20130617
  Transmission Date: 20140414
  Serious: No
  Sender: FDA-Public Use
  Company Number: None

PATIENT
  Sex: Female

DRUGS (1)
  1. ENBREL SURECLICK 50MG AMGEN INC [Suspect]
     Route: 058
     Dates: start: 20130219

REACTIONS (4)
  - Abdominal discomfort [None]
  - Diarrhoea [None]
  - Nausea [None]
  - Vomiting [None]
